FAERS Safety Report 11614314 (Version 6)
Quarter: 2018Q3

REPORT INFORMATION
  Report Type: Spontaneous
  Country: JP (occurrence: JP)
  Receive Date: 20151008
  Receipt Date: 20180703
  Transmission Date: 20181010
  Serious: Yes (Hospitalization, Disabling, Other)
  Sender: FDA-Public Use
  Company Number: JP-BRISTOL-MYERS SQUIBB COMPANY-BMS-2015-066406

PATIENT
  Age: 71 Year
  Sex: Female
  Weight: 58 kg

DRUGS (9)
  1. LOTRIGA [Concomitant]
     Active Substance: OMEGA-3-ACID ETHYL ESTERS
     Indication: DYSLIPIDAEMIA
     Dosage: 2 G, QD (START DATE: BEFORE 05?JUN?2015)
     Route: 048
     Dates: end: 20150914
  2. DAKLINZA [Suspect]
     Active Substance: DACLATASVIR
     Indication: CHRONIC HEPATITIS C
     Dosage: 60 MG, QD
     Route: 048
     Dates: start: 20150605, end: 20150914
  3. ALFACALCIDOL [Concomitant]
     Active Substance: ALFACALCIDOL
     Indication: OSTEOPOROSIS
     Dosage: 0.5 ?G, QD (START DATE: BEFORE 05?JUN?2015)
     Route: 048
     Dates: end: 20150914
  4. KETOPROFEN. [Concomitant]
     Active Substance: KETOPROFEN
     Indication: OSTEOPOROSIS
     Dosage: 30 MG, PRN (START DATE: BEFORE 05?JUN?2015)
     Route: 048
  5. MOSAPRIDE CITRATE [Concomitant]
     Active Substance: MOSAPRIDE CITRATE
     Indication: GASTROENTERITIS
     Dosage: 15 MG,(START DATE: BEFORE 05?JUN?2015)
     Route: 048
     Dates: end: 20150914
  6. ALENDRONATE [Concomitant]
     Active Substance: ALENDRONATE SODIUM
     Indication: OSTEOPOROSIS
     Dosage: 35 MG, QWK (START DATE: BEFORE 05?JUN?2015)
     Route: 048
     Dates: end: 20150914
  7. BIO?THREE [Concomitant]
     Active Substance: HERBALS
     Indication: GASTROENTERITIS
     Dosage: 3 TAB, QD
     Route: 048
     Dates: end: 20150914
  8. CALCIUM L?ASPARTATE [Concomitant]
     Indication: OSTEOPOROSIS
     Dosage: 200 MG, QD (START DATE: BEFORE 05?JUN?2015)
     Route: 048
     Dates: end: 20150914
  9. SUNVEPRA [Suspect]
     Active Substance: ASUNAPREVIR
     Indication: CHRONIC HEPATITIS C
     Dosage: 100 MG, BID
     Route: 048
     Dates: start: 20150605, end: 20150914

REACTIONS (5)
  - Alanine aminotransferase increased [Recovering/Resolving]
  - Cataract [Recovering/Resolving]
  - Diarrhoea [Recovered/Resolved]
  - Leukoencephalopathy [Not Recovered/Not Resolved]
  - Blindness [Unknown]

NARRATIVE: CASE EVENT DATE: 20150814
